FAERS Safety Report 9335530 (Version 3)
Quarter: 2013Q3

REPORT INFORMATION
  Report Type: Spontaneous
  Country: BR (occurrence: BR)
  Receive Date: 20130605
  Receipt Date: 20130801
  Transmission Date: 20140515
  Serious: Yes (Death, Hospitalization)
  Sender: FDA-Public Use
  Company Number: BR-GLAXOSMITHKLINE-A1025594A

PATIENT
  Age: 39 Year
  Sex: Female

DRUGS (4)
  1. ARIXTRA [Suspect]
     Indication: PROPHYLAXIS
     Dosage: 2.5MG UNKNOWN
     Route: 065
  2. NORADRENALINE [Concomitant]
  3. ANTIBIOTIC [Concomitant]
  4. PROPRANOLOL [Concomitant]

REACTIONS (7)
  - Haemorrhage [Fatal]
  - Portal vein thrombosis [Fatal]
  - Platelet count decreased [Fatal]
  - Disseminated intravascular coagulation [Unknown]
  - Female genital tract fistula [Fatal]
  - Sepsis [Fatal]
  - Hypovolaemic shock [Fatal]
